FAERS Safety Report 10584568 (Version 1)
Quarter: 2014Q4

REPORT INFORMATION
  Report Type: Spontaneous
  Country: JP (occurrence: None)
  Receive Date: 20141112
  Receipt Date: 20141112
  Transmission Date: 20150529
  Serious: No
  Sender: FDA-Public Use
  Company Number: JP2014JPN002089

PATIENT
  Sex: Male

DRUGS (2)
  1. VOZET [Suspect]
     Active Substance: LEVOCETIRIZINE DIHYDROCHLORIDE
     Route: 048
     Dates: start: 201410
  2. PAXIL [Suspect]
     Active Substance: PAROXETINE HYDROCHLORIDE
     Indication: DEPRESSION
     Route: 048
     Dates: start: 20140928, end: 20141001

REACTIONS (4)
  - Agranulocytosis [None]
  - White blood cell count decreased [None]
  - Drug eruption [None]
  - Pyrexia [None]

NARRATIVE: CASE EVENT DATE: 20141001
